FAERS Safety Report 9774868 (Version 1)
Quarter: 2013Q4

REPORT INFORMATION
  Report Type: Spontaneous
  Country: US (occurrence: US)
  Receive Date: 20131220
  Receipt Date: 20131220
  Transmission Date: 20140711
  Serious: No
  Sender: FDA-Public Use
  Company Number: US-GLAXOSMITHKLINE-A1004751A

PATIENT
  Age: 64 Year
  Sex: Male

DRUGS (4)
  1. AVODART [Suspect]
     Indication: CALCULUS BLADDER
     Dosage: .5MG PER DAY
     Route: 048
     Dates: start: 2009
  2. FLOMAX [Concomitant]
  3. CRESTOR [Concomitant]
  4. ASPIRIN [Concomitant]

REACTIONS (6)
  - Libido decreased [Not Recovered/Not Resolved]
  - Semen volume decreased [Unknown]
  - Asthenia [Unknown]
  - Catheter placement [Unknown]
  - Dysuria [Unknown]
  - Bladder calculus removal [Unknown]
